FAERS Safety Report 4469581-6 (Version None)
Quarter: 2004Q4

REPORT INFORMATION
  Report Type: 
  Country: None (occurrence: None)
  Receive Date: 20041008
  Receipt Date: 20040924
  Transmission Date: 20050328
  Serious: Yes (Hospitalization)
  Sender: FDA-Public Use
  Company Number: GB-MERCK-0410GBR00028

PATIENT
  Age: 68 Year
  Sex: Male

DRUGS (4)
  1. AMLODIPINE BESYLATE [Concomitant]
     Route: 048
  2. ASPIRIN [Concomitant]
     Route: 065
  3. ENOXAPARIN SODIUM [Concomitant]
     Route: 058
  4. ZOCOR [Suspect]
     Route: 048

REACTIONS (3)
  - ACUTE CORONARY SYNDROME [None]
  - STAPHYLOCOCCAL SEPSIS [None]
  - THROMBOTIC THROMBOCYTOPENIC PURPURA [None]
